FAERS Safety Report 16451087 (Version 1)
Quarter: 2019Q3

REPORT INFORMATION
  Report Type: Spontaneous
  Country: US (occurrence: US)
  Receive Date: 20190618
  Receipt Date: 20190618
  Transmission Date: 20191004
  Serious: Yes (Hospitalization)
  Sender: FDA-Public Use
  Company Number: None

PATIENT
  Age: 16 Year
  Sex: Female

DRUGS (7)
  1. AZITHROMYCIN ANHYDROUS. [Concomitant]
     Active Substance: AZITHROMYCIN ANHYDROUS
  2. PROAIR HFA [Concomitant]
     Active Substance: ALBUTEROL SULFATE
  3. BUDESONIDE. [Concomitant]
     Active Substance: BUDESONIDE
  4. TOBRAMYCIN. [Suspect]
     Active Substance: TOBRAMYCIN
     Indication: LUNG DISORDER
     Route: 048
     Dates: start: 20170216
  5. SINGULAIR [Concomitant]
     Active Substance: MONTELUKAST SODIUM
  6. FLOVENT [Concomitant]
     Active Substance: FLUTICASONE PROPIONATE
  7. ALBUTEROL. [Concomitant]
     Active Substance: ALBUTEROL

REACTIONS (2)
  - Condition aggravated [None]
  - Lung disorder [None]

NARRATIVE: CASE EVENT DATE: 20190530
